FAERS Safety Report 23988875 (Version 1)
Quarter: 2024Q2

REPORT INFORMATION
  Report Type: Spontaneous
  Country: US (occurrence: US)
  Receive Date: 20240619
  Receipt Date: 20240619
  Transmission Date: 20240716
  Serious: No
  Sender: FDA-Public Use
  Company Number: US-CADILA HEALTHCARE LIMITED-US-ZYDUS-103757

PATIENT

DRUGS (2)
  1. MELOXICAM [Suspect]
     Active Substance: MELOXICAM
     Indication: Inflammation
     Dosage: 7.5 MILLIGRAM, QD
     Route: 048
     Dates: start: 20231228, end: 20240101
  2. MELOXICAM [Suspect]
     Active Substance: MELOXICAM
     Indication: Off label use

REACTIONS (2)
  - Dysphagia [Not Recovered/Not Resolved]
  - Product use in unapproved indication [Recovered/Resolved]

NARRATIVE: CASE EVENT DATE: 20231228
